FAERS Safety Report 10596154 (Version 6)
Quarter: 2016Q3

REPORT INFORMATION
  Report Type: Spontaneous
  Country: US (occurrence: US)
  Receive Date: 20141120
  Receipt Date: 20160816
  Transmission Date: 20161109
  Serious: Yes (Hospitalization, Other)
  Sender: FDA-Public Use
  Company Number: US-009507513-1411USA008929

PATIENT
  Sex: Female

DRUGS (8)
  1. ALENDRONATE SODIUM. [Suspect]
     Active Substance: ALENDRONATE SODIUM
     Indication: OSTEOPENIA
  2. VITAMINS (UNSPECIFIED) [Concomitant]
     Active Substance: VITAMINS
     Dosage: UNK
     Route: 065
     Dates: start: 1995
  3. FOSAMAX [Suspect]
     Active Substance: ALENDRONATE SODIUM
     Indication: OSTEOPOROSIS
     Dosage: 70 MG, QW
     Route: 048
     Dates: start: 2001, end: 2011
  4. ALENDRONATE SODIUM. [Suspect]
     Active Substance: ALENDRONATE SODIUM
     Indication: OSTEOPOROSIS
     Dosage: 70 MG, QW
     Route: 048
     Dates: start: 2011, end: 2012
  5. CALCIUM (UNSPECIFIED) [Concomitant]
     Active Substance: CALCIUM
     Dosage: 200 MG, UNK
     Route: 065
     Dates: start: 1995
  6. UBIDECARENONE [Concomitant]
     Active Substance: UBIDECARENONE
     Dosage: UNK
     Route: 065
     Dates: start: 1995
  7. FOSAMAX [Suspect]
     Active Substance: ALENDRONATE SODIUM
     Indication: OSTEOPENIA
  8. OMEGA-3 MARINE TRIGLYCERIDES [Concomitant]
     Active Substance: FISH OIL
     Dosage: UNK
     Route: 065
     Dates: start: 1995

REACTIONS (27)
  - Femur fracture [Unknown]
  - Fall [Unknown]
  - Hyperlipidaemia [Unknown]
  - Insomnia [Unknown]
  - Tendon disorder [Unknown]
  - Pulmonary hypertension [Unknown]
  - Osteoarthritis [Unknown]
  - Impacted fracture [Unknown]
  - Spinal operation [Unknown]
  - Chondrocalcinosis [Unknown]
  - Gastrooesophageal reflux disease [Unknown]
  - Mitral valve disease [Unknown]
  - Vaginal prolapse [Unknown]
  - Helicobacter test positive [Unknown]
  - Aortic stenosis [Unknown]
  - Muscular weakness [Unknown]
  - Haemoglobin decreased [Unknown]
  - Muscle atrophy [Unknown]
  - Osteoporosis [Unknown]
  - Vascular calcification [Unknown]
  - Fracture delayed union [Unknown]
  - Scoliosis [Unknown]
  - Sleep apnoea syndrome [Unknown]
  - Joint effusion [Unknown]
  - Diverticulum [Unknown]
  - Joint instability [Unknown]
  - Joint dislocation [Unknown]

NARRATIVE: CASE EVENT DATE: 2011
